FAERS Safety Report 15768162 (Version 2)
Quarter: 2019Q1

REPORT INFORMATION
  Report Type: Spontaneous
  Country: US (occurrence: US)
  Receive Date: 20181227
  Receipt Date: 20190103
  Transmission Date: 20190417
  Serious: Yes (Hospitalization, Other)
  Sender: FDA-Public Use
  Company Number: US-PFIZER INC-2018527984

PATIENT
  Age: 7 Week
  Sex: Male

DRUGS (21)
  1. ATROPINE SULFATE. [Suspect]
     Active Substance: ATROPINE SULFATE
     Indication: ABDOMINAL PAIN
     Dosage: UNK (INITIAL DOSE OF HALF A TEASPOON WAS GIVEN IN A SMALL AMOUNT OF WATER AND WAS ENTIRELY RETAINED)
     Route: 048
     Dates: start: 19481022
  2. PENTOTHAL [Concomitant]
     Active Substance: THIOPENTAL SODIUM
     Dosage: UNK (1 CC)
     Route: 058
     Dates: start: 19481024
  3. PILOCARPINE. [Concomitant]
     Active Substance: PILOCARPINE
     Indication: CONJUNCTIVAL DISORDER
     Dosage: UNK
  4. ATROPINE SULFATE. [Suspect]
     Active Substance: ATROPINE SULFATE
     Dosage: 40-70 MG
     Route: 048
  5. PILOCARPINE NITRATE [Concomitant]
     Active Substance: PILOCARPINE NITRATE
     Indication: CONJUNCTIVAL DISORDER
     Dosage: 0.001 G, UNK
     Route: 058
     Dates: start: 19481024
  6. SODIUM BENZOATE [Concomitant]
     Active Substance: SODIUM BENZOATE
     Indication: DYSPNOEA
     Dosage: 0.125 G, UNK
     Route: 058
     Dates: start: 19481024
  7. PENICILLIN B [Concomitant]
     Active Substance: PHENETICILLIN
     Indication: INFECTION
     Dosage: UNK, 4X/DAY (20000 UNITS)
     Route: 058
     Dates: start: 19481024
  8. DEXTROSE. [Concomitant]
     Active Substance: DEXTROSE
     Dosage: UNK (EIGHTY CUBIC CENTIMETERS)
     Route: 042
     Dates: start: 19481024
  9. ATROPINE SULFATE. [Suspect]
     Active Substance: ATROPINE SULFATE
     Dosage: SIX FURTHER DOSES OF A QUARTER OF A TEASPOON
     Route: 048
  10. PENTOTHAL [Concomitant]
     Active Substance: THIOPENTAL SODIUM
     Dosage: UNK (0.5 CC)
     Route: 058
     Dates: start: 19481024
  11. NIKETHAMIDE [Concomitant]
     Active Substance: NIKETHAMIDE
     Indication: RESPIRATORY DISORDER
     Dosage: 0.375 G, UNK (1 CC)
     Route: 058
     Dates: start: 19481024
  12. ATROPINE SULFATE. [Suspect]
     Active Substance: ATROPINE SULFATE
     Dosage: UNK (1/4 TEASPOON WERE GIVEN AT 2 A.M)
     Route: 048
     Dates: start: 19481023
  13. CAFFEINE. [Concomitant]
     Active Substance: CAFFEINE
     Indication: DYSPNOEA
     Dosage: 0.125 G, UNK
     Route: 058
     Dates: start: 19481024
  14. ATROPINE SULFATE. [Suspect]
     Active Substance: ATROPINE SULFATE
     Dosage: UNK (1/4 TEASPOON WERE GIVEN AT 10 A.M)
     Route: 048
     Dates: start: 19481023
  15. PENTOTHAL [Concomitant]
     Active Substance: THIOPENTAL SODIUM
     Dosage: UNK (1 CC)
     Route: 042
     Dates: start: 19481024
  16. ATROPINE SULFATE. [Suspect]
     Active Substance: ATROPINE SULFATE
     Dosage: UNK (1/4 TEASPOON WERE GIVEN AT 6 P.M)
     Dates: start: 19481023
  17. PENTOTHAL [Concomitant]
     Active Substance: THIOPENTAL SODIUM
     Indication: SEIZURE
     Dosage: 0.025 G, UNK
     Route: 042
     Dates: start: 19481024
  18. ATROPINE SULFATE. [Suspect]
     Active Substance: ATROPINE SULFATE
     Dosage: UNK (1/4 TEASPOON WAS ADMINISTERED SIMILARLY)
     Route: 048
     Dates: start: 19481022
  19. ATROPINE SULFATE. [Suspect]
     Active Substance: ATROPINE SULFATE
     Dosage: UNK (1/4 TEASPOON WERE GIVEN AT  2 P.M)
     Dates: start: 19481023
  20. PILOCARPINE NITRATE [Concomitant]
     Active Substance: PILOCARPINE NITRATE
     Dosage: UNK (SOLUTION OF PILOCARPINE NITRATE WAS INSTILLED IN TO EACH EYES)
     Dates: start: 19481024
  21. OXYGEN. [Concomitant]
     Active Substance: OXYGEN
     Dosage: UNK
     Dates: start: 19481024

REACTIONS (6)
  - Muscle rigidity [Unknown]
  - Pyrexia [Unknown]
  - Toxicity to various agents [Unknown]
  - Anuria [Unknown]
  - Ophthalmoplegia [Unknown]
  - Product dispensing error [Unknown]

NARRATIVE: CASE EVENT DATE: 194810
